FAERS Safety Report 8985014 (Version 1)
Quarter: 2012Q4

REPORT INFORMATION
  Report Type: 
  Country: US (occurrence: US)
  Receive Date: 20121226
  Receipt Date: 20121226
  Transmission Date: 20130627
  Serious: No
  Sender: FDA-Public Use
  Company Number: US-PFIZER INC-2012323400

PATIENT
  Age: 75 Year
  Sex: Male
  Weight: 97.96 kg

DRUGS (2)
  1. MORPHINE SULFATE [Suspect]
     Dosage: UNK
  2. NALBUPHINE HYDROCHLORIDE [Suspect]
     Dosage: UNK

REACTIONS (3)
  - Blood pressure decreased [Unknown]
  - Feeling abnormal [Unknown]
  - Drug hypersensitivity [Unknown]
